FAERS Safety Report 4455036-1 (Version None)
Quarter: 2004Q3

REPORT INFORMATION
  Report Type: 
  Country: None (occurrence: None)
  Receive Date: 20040917
  Receipt Date: 20040830
  Transmission Date: 20050211
  Serious: Yes (Other)
  Sender: FDA-Public Use
  Company Number: USA040875553

PATIENT
  Age: 51 Year
  Sex: Female

DRUGS (1)
  1. STRATTERA [Suspect]
     Dosage: 40 MG/2 DAY
     Dates: start: 20040804

REACTIONS (6)
  - DIZZINESS [None]
  - DYSKINESIA [None]
  - DYSPNOEA [None]
  - MEDICATION ERROR [None]
  - MYALGIA [None]
  - OVERDOSE [None]
